FAERS Safety Report 21393698 (Version 1)
Quarter: 2022Q3

REPORT INFORMATION
  Report Type: Spontaneous
  Country: US (occurrence: US)
  Receive Date: 20220930
  Receipt Date: 20220930
  Transmission Date: 20221027
  Serious: No
  Sender: FDA-Public Use
  Company Number: US-JNJFOC-20220924192

PATIENT
  Age: 20 Year
  Sex: Female

DRUGS (2)
  1. HALDOL DECANOATE [Interacting]
     Active Substance: HALOPERIDOL DECANOATE
     Indication: Product used for unknown indication
     Route: 065
     Dates: start: 202208, end: 202208
  2. LUMATEPERONE [Interacting]
     Active Substance: LUMATEPERONE
     Indication: Bipolar disorder
     Route: 065
     Dates: start: 20220825, end: 20220825

REACTIONS (3)
  - Somnolence [Unknown]
  - Headache [Unknown]
  - Drug interaction [Unknown]

NARRATIVE: CASE EVENT DATE: 20220825
